FAERS Safety Report 7151157-3 (Version None)
Quarter: 2010Q4

REPORT INFORMATION
  Report Type: 
  Country: None (occurrence: None)
  Receive Date: 20101210
  Receipt Date: 20101202
  Transmission Date: 20110411
  Serious: Yes (Hospitalization)
  Sender: FDA-Public Use
  Company Number: US-BRISTOL-MYERS SQUIBB COMPANY-15341829

PATIENT
  Age: 55 Year
  Sex: Male
  Weight: 71 kg

DRUGS (29)
  1. CETUXIMAB [Suspect]
     Indication: NON-SMALL CELL LUNG CANCER
     Dosage: NO.OF INF:4, RECENT INF ON 21SEP2010. 64.286MG
     Route: 042
     Dates: start: 20100831, end: 20100921
  2. CARBOPLATIN [Suspect]
     Indication: NON-SMALL CELL LUNG CANCER
     Dosage: 29.5238(UNITS NOT SPECIFIED); RECENT INF ON 21SEP2010 (2ND INF).
     Route: 042
     Dates: start: 20100831, end: 20100921
  3. ALIMTA [Suspect]
     Indication: NON-SMALL CELL LUNG CANCER
     Dosage: INTERRUPTED ON 21SEP10 NO.OF INF:2, RECENT INF ON 21SEP2010. 42.381MG
     Route: 042
     Dates: start: 20100831, end: 20100921
  4. DOCUSATE [Concomitant]
     Route: 048
     Dates: start: 20101008
  5. FOLIC ACID [Concomitant]
     Route: 048
     Dates: start: 20101008
  6. PREGABALIN [Concomitant]
     Indication: FIBROMYALGIA
     Dosage: 450MG
     Route: 048
     Dates: start: 20101008
  7. TAMSULOSIN [Concomitant]
     Indication: BENIGN PROSTATIC HYPERPLASIA
     Dosage: WITH FOOD AT DINNER.
     Route: 048
     Dates: start: 20101008
  8. FINASTERIDE [Concomitant]
     Route: 048
     Dates: start: 20101008
  9. DIFLUCAN [Concomitant]
  10. NEOSPORIN [Concomitant]
  11. CLOTRIMAZOLE [Concomitant]
     Dosage: CREAM
  12. HYDROMORPHONE HCL [Concomitant]
  13. FENTANYL CITRATE [Concomitant]
  14. VANCOMYCIN [Concomitant]
  15. PREDNISONE [Concomitant]
  16. FINASTERIDE [Concomitant]
  17. HYDROCODONE BITARTRATE AND ACETAMINOPHEN [Concomitant]
  18. DIPHENHYDRAMINE [Concomitant]
  19. HYDROXYZINE [Concomitant]
  20. ACETAMINOPHEN [Concomitant]
  21. AMITRIPTYLINE [Concomitant]
     Route: 048
     Dates: start: 20101008
  22. ONDANSETRON [Concomitant]
     Route: 048
     Dates: start: 20101008
  23. ZOLPIDEM [Concomitant]
     Indication: INSOMNIA
     Dosage: AT BEDTIME
     Route: 048
     Dates: start: 20101008
  24. HEPARIN LOCK-FLUSH [Concomitant]
     Dosage: 1 DF = 500 UNITS/5 ML SOLN
     Route: 042
     Dates: start: 20101008
  25. SODIUM CHLORIDE [Concomitant]
     Dosage: 1 DF = 20MG/ML
     Route: 042
     Dates: start: 20101008
  26. ALLOPURINOL [Concomitant]
     Indication: GOUT
     Dosage: WITH FOOD AT BREAK FAST.
     Route: 048
     Dates: start: 20101008
  27. IMODIUM [Concomitant]
     Dosage: 8 X DAY, PRN
     Route: 065
  28. OXYMORPHONE [Concomitant]
     Dosage: Q12H
     Route: 065
  29. VITAMIN B-12 [Concomitant]
     Dates: start: 20100826

REACTIONS (12)
  - ALANINE AMINOTRANSFERASE INCREASED [None]
  - BLOOD ALKALINE PHOSPHATASE INCREASED [None]
  - BLOOD GLUCOSE INCREASED [None]
  - CELLULITIS [None]
  - DEHYDRATION [None]
  - FUNGAEMIA [None]
  - HAEMOGLOBIN DECREASED [None]
  - LEUKOCYTOCLASTIC VASCULITIS [None]
  - RASH [None]
  - RED BLOOD CELL COUNT DECREASED [None]
  - SYSTEMIC CANDIDA [None]
  - VASCULITIS [None]
